FAERS Safety Report 13144023 (Version 2)
Quarter: 2017Q1

REPORT INFORMATION
  Report Type: Spontaneous
  Country: US (occurrence: US)
  Receive Date: 20170124
  Receipt Date: 20170127
  Transmission Date: 20170428
  Serious: Yes (Hospitalization)
  Sender: FDA-Public Use
  Company Number: US-ASTRAZENECA-2017SE05844

PATIENT
  Age: 948 Month
  Sex: Female
  Weight: 81.2 kg

DRUGS (3)
  1. SYMBICORT [Suspect]
     Active Substance: BUDESONIDE\FORMOTEROL FUMARATE DIHYDRATE
     Indication: DYSPNOEA
     Dosage: 160/4.5 UG AS REQUIRED AS REQUIRED
     Route: 055
  2. SYMBICORT [Suspect]
     Active Substance: BUDESONIDE\FORMOTEROL FUMARATE DIHYDRATE
     Indication: DYSPNOEA
     Dosage: 160/4.5 UG TWO PUFFS TWICE A DAY  AS REQUIRED
     Route: 055
  3. RESCUE INHALER [Concomitant]
     Route: 055

REACTIONS (8)
  - Faecaloma [Recovered/Resolved with Sequelae]
  - Device issue [Unknown]
  - Drug dose omission [Recovered/Resolved]
  - Intentional product misuse [Unknown]
  - Product use issue [Unknown]
  - Device malfunction [Recovered/Resolved]
  - Off label use [Unknown]
  - Underdose [Recovered/Resolved]

NARRATIVE: CASE EVENT DATE: 201605
